FAERS Safety Report 5043524-9 (Version None)
Quarter: 2006Q2

REPORT INFORMATION
  Report Type: 
  Country: None (occurrence: None)
  Receive Date: 20060601
  Receipt Date: 20060114
  Transmission Date: 20061013
  Serious: No
  Sender: FDA-Public Use
  Company Number: 2006PV007079

PATIENT
  Age: 37 Year
  Sex: Female
  Weight: 88.4514 kg

DRUGS (3)
  1. BYETTA [Suspect]
     Indication: DIABETES MELLITUS NON-INSULIN-DEPENDENT
     Dosage: 5 MCG; BID; SC
     Route: 058
     Dates: start: 20060113, end: 20060114
  2. GLUCOPHAGE [Concomitant]
  3. AVANDIA [Concomitant]

REACTIONS (7)
  - EAR PRURITUS [None]
  - EYE PRURITUS [None]
  - FLUSHING [None]
  - PARAESTHESIA ORAL [None]
  - RASH [None]
  - URTICARIA LOCALISED [None]
  - WHEEZING [None]
